FAERS Safety Report 7806518 (Version 9)
Quarter: 2014Q2

REPORT INFORMATION
  Report Type: Report from Study
  Country: US (occurrence: US)
  Receive Date: 20110210
  Receipt Date: 20140618
  Transmission Date: 20141212
  Serious: Yes (Hospitalization)
  Sender: FDA-Public Use
  Company Number: US-BIOGENIDEC-2007BI007964

PATIENT
  Age: 52 Year
  Sex: Female
  Weight: 86 kg

DRUGS (6)
  1. AVONEX [Suspect]
     Indication: MULTIPLE SCLEROSIS
     Route: 030
     Dates: start: 19971018, end: 200308
  2. AVONEX [Suspect]
     Indication: MULTIPLE SCLEROSIS
     Route: 030
     Dates: start: 200308, end: 20120722
  3. AVONEX [Suspect]
     Indication: MULTIPLE SCLEROSIS
     Route: 030
     Dates: start: 20120729
  4. AMPYRA [Concomitant]
  5. ZANAFLEX [Concomitant]
     Indication: MUSCLE SPASMS
  6. B COMPLEX [Concomitant]

REACTIONS (34)
  - Myocardial infarction [Recovered/Resolved]
  - Fall [Recovered/Resolved]
  - Cardiac ventricular disorder [Recovered/Resolved]
  - Cholelithiasis [Recovered/Resolved]
  - Respiratory arrest [Recovered/Resolved]
  - Chronic obstructive pulmonary disease [Not Recovered/Not Resolved]
  - Asthma [Recovered/Resolved]
  - Kidney infection [Unknown]
  - Cystitis [Recovered/Resolved]
  - Dyspnoea [Recovered/Resolved]
  - Vomiting [Recovered/Resolved]
  - Convulsion [Recovered/Resolved]
  - Psychomotor hyperactivity [Not Recovered/Not Resolved]
  - Osteoporosis [Not Recovered/Not Resolved]
  - Blood pressure decreased [Unknown]
  - Diverticulitis [Unknown]
  - Eyelid ptosis [Recovered/Resolved]
  - Cataract [Unknown]
  - Hypertonic bladder [Not Recovered/Not Resolved]
  - Ligament sprain [Recovered/Resolved]
  - Lower extremity mass [Not Recovered/Not Resolved]
  - Wrong technique in drug usage process [Recovered/Resolved]
  - Overweight [Not Recovered/Not Resolved]
  - Dysstasia [Not Recovered/Not Resolved]
  - Gait disturbance [Recovered/Resolved]
  - Low density lipoprotein increased [Unknown]
  - Urinary tract infection [Recovered/Resolved]
  - Crying [Not Recovered/Not Resolved]
  - Cognitive disorder [Not Recovered/Not Resolved]
  - Injection site pain [Recovered/Resolved]
  - Muscular weakness [Unknown]
  - Drug hypersensitivity [Recovered/Resolved]
  - Asthenia [Not Recovered/Not Resolved]
  - Fatigue [Recovered/Resolved]
